FAERS Safety Report 7325326-3 (Version None)
Quarter: 2011Q1

REPORT INFORMATION
  Report Type: 
  Country: None (occurrence: None)
  Receive Date: 20110302
  Receipt Date: 20110209
  Transmission Date: 20110831
  Serious: Yes (Hospitalization, Other)
  Sender: FDA-Public Use
  Company Number: US-BAYER-201029338NA

PATIENT
  Sex: Female

DRUGS (9)
  1. YAZ [Suspect]
     Indication: ORAL CONTRACEPTION
     Dosage: UNK UNK, UNK
     Route: 048
     Dates: start: 20060827, end: 20070717
  2. YASMIN [Suspect]
     Indication: MENSTRUATION IRREGULAR
  3. NASACORT [Concomitant]
     Dosage: UNK UNK, QD
     Route: 045
  4. UNCODEABLE ^UNCLASSIFIABLE^ [Concomitant]
     Dosage: UNK UNK, OW
     Route: 030
  5. YASMIN [Suspect]
     Indication: ORAL CONTRACEPTION
     Dosage: UNK UNK, UNK
     Route: 048
     Dates: start: 20060801, end: 20070601
  6. ALLEGRA [Concomitant]
     Dosage: 180 MG, QD
     Route: 048
  7. YAZ [Suspect]
     Indication: MUSCLE SPASMS
  8. YAZ [Suspect]
     Indication: MENSTRUATION IRREGULAR
  9. MULTIPLE VITAMINS [Concomitant]

REACTIONS (2)
  - SUFFOCATION FEELING [None]
  - PULMONARY EMBOLISM [None]
